FAERS Safety Report 12488227 (Version 1)
Quarter: 2016Q2

REPORT INFORMATION
  Report Type: Report from Study
  Country: FR (occurrence: FR)
  Receive Date: 20160622
  Receipt Date: 20160622
  Transmission Date: 20160815
  Serious: Yes (Hospitalization)
  Sender: FDA-Public Use
  Company Number: FR-ABBVIE-16K-056-1655443-00

PATIENT
  Age: 72 Year
  Sex: Female
  Weight: 62 kg

DRUGS (3)
  1. EXVIERA [Suspect]
     Active Substance: DASABUVIR
     Indication: HEPATITIS C
     Route: 048
     Dates: start: 20150413, end: 20150706
  2. TEMERIT [Concomitant]
     Active Substance: NEBIVOLOL
     Indication: HYPERTENSION
  3. VIEKIRAX [Suspect]
     Active Substance: OMBITASVIR\PARITAPREVIR\RITONAVIR
     Indication: HEPATITIS C
     Dosage: 12.5/75/50MG X 2
     Route: 048
     Dates: start: 20150413, end: 20150706

REACTIONS (1)
  - Basal cell carcinoma [Recovered/Resolved]

NARRATIVE: CASE EVENT DATE: 20150629
